FAERS Safety Report 10053817 (Version 2)
Quarter: 2014Q2

REPORT INFORMATION
  Report Type: Spontaneous
  Country: GB (occurrence: GB)
  Receive Date: 20140402
  Receipt Date: 20140417
  Transmission Date: 20141212
  Serious: Yes (Hospitalization)
  Sender: FDA-Public Use
  Company Number: PHFR2014GB002520

PATIENT
  Age: 74 Year
  Sex: Female

DRUGS (5)
  1. CLOZARIL [Suspect]
     Indication: SCHIZOPHRENIA, CATATONIC TYPE
     Dosage: UNK
     Route: 048
     Dates: start: 20121214
  2. CLOZARIL [Suspect]
     Dosage: 150 MG, DAILY (50 MG MANE AND 100 MG NOCTE)
     Route: 048
  3. ADCAL D3 [Concomitant]
     Dosage: UNK UKN, BID
     Route: 048
  4. ALENDRONIC ACID [Concomitant]
     Dosage: 70 MG, WEEKLY
     Route: 048
  5. DALTEPARIN [Concomitant]
     Dosage: 5000 U, DAILY
     Route: 058

REACTIONS (2)
  - Fall [Recovering/Resolving]
  - Cervical vertebral fracture [Recovering/Resolving]
